FAERS Safety Report 16954052 (Version 1)
Quarter: 2019Q4

REPORT INFORMATION
  Report Type: Spontaneous
  Country: US (occurrence: US)
  Receive Date: 20191023
  Receipt Date: 20191023
  Transmission Date: 20200122
  Serious: No
  Sender: FDA-Public Use
  Company Number: US-ABBVIE-19K-163-2969654-00

PATIENT
  Sex: Female

DRUGS (4)
  1. ORILISSA [Suspect]
     Active Substance: ELAGOLIX SODIUM
     Indication: ENDOMETRIOSIS
     Route: 048
     Dates: start: 2019
  2. TURMERIC [Concomitant]
     Active Substance: HERBALS\TURMERIC
     Indication: ENDOMETRIOSIS
  3. GABAPENTIN. [Concomitant]
     Active Substance: GABAPENTIN
     Indication: SLEEP DISORDER
  4. CBD OIL [Concomitant]
     Active Substance: CANNABIDIOL\HERBALS
     Indication: ENDOMETRIOSIS

REACTIONS (2)
  - Drug ineffective [Not Recovered/Not Resolved]
  - Endometriosis [Not Recovered/Not Resolved]

NARRATIVE: CASE EVENT DATE: 2019
